FAERS Safety Report 6137580-4 (Version None)
Quarter: 2009Q1

REPORT INFORMATION
  Report Type: 
  Country: None (occurrence: None)
  Receive Date: 20090327
  Receipt Date: 20090327
  Transmission Date: 20090719
  Serious: Yes (Disabling)
  Sender: FDA-Public Use
  Company Number: None

PATIENT
  Age: 86 Year
  Sex: Female
  Weight: 77.1115 kg

DRUGS (1)
  1. RECLAST [Suspect]
     Indication: OSTEOPOROSIS
     Dosage: 5 MG 1 IV
     Route: 042
     Dates: start: 20081201

REACTIONS (4)
  - MUSCLE SPASMS [None]
  - NAUSEA [None]
  - PAIN [None]
  - VOMITING [None]
